FAERS Safety Report 9868729 (Version 1)
Quarter: 2014Q1

REPORT INFORMATION
  Report Type: Report from Study
  Country: US (occurrence: US)
  Receive Date: 20140204
  Receipt Date: 20140204
  Transmission Date: 20141002
  Serious: Yes (Hospitalization, Other)
  Sender: FDA-Public Use
  Company Number: US-ABBVIE-14P-163-1195101-00

PATIENT
  Age: 49 Year
  Sex: Female

DRUGS (10)
  1. HUMIRA [Suspect]
     Indication: CROHN^S DISEASE
     Dates: start: 2012, end: 201305
  2. MEGACE [Concomitant]
     Indication: MENSTRUAL DISORDER
  3. PROZAC [Concomitant]
     Indication: DEPRESSION
  4. PROAIR HFA [Concomitant]
     Indication: EMPHYSEMA
     Route: 055
  5. DIAMOX [Concomitant]
     Indication: FLUID RETENTION
  6. ASACOL [Concomitant]
     Indication: CROHN^S DISEASE
  7. XANAX [Concomitant]
     Indication: ANXIETY
  8. TRAZODONE [Concomitant]
     Indication: DEPRESSION
  9. SINGULAIR [Concomitant]
     Indication: EMPHYSEMA
  10. AMBIEN [Concomitant]
     Indication: PRODUCT USED FOR UNKNOWN INDICATION

REACTIONS (6)
  - Haemorrhage [Recovered/Resolved]
  - Abdominal distension [Unknown]
  - Weight increased [Recovering/Resolving]
  - Migraine [Recovered/Resolved]
  - Death of relative [Unknown]
  - Suicidal ideation [Not Recovered/Not Resolved]
